FAERS Safety Report 18329073 (Version 1)
Quarter: 2020Q3

REPORT INFORMATION
  Report Type: Spontaneous
  Country: US (occurrence: US)
  Receive Date: 20200929
  Receipt Date: 20200929
  Transmission Date: 20201103
  Serious: Yes (Disabling)
  Sender: FDA-Public Use
  Company Number: None

PATIENT
  Age: 42 Year
  Sex: Female
  Weight: 67.5 kg

DRUGS (2)
  1. COPAXONE [Suspect]
     Active Substance: GLATIRAMER ACETATE
     Indication: RELAPSING-REMITTING MULTIPLE SCLEROSIS
     Dosage: ?          QUANTITY:12 INJECTION(S);OTHER FREQUENCY:3 TIMES PER WEEK;?
     Route: 058
     Dates: start: 20150915, end: 20180408
  2. COPAXONE [Suspect]
     Active Substance: GLATIRAMER ACETATE
     Indication: RELAPSING-REMITTING MULTIPLE SCLEROSIS
     Dosage: ?          QUANTITY:28 INJECTION(S);?
     Route: 058
     Dates: start: 20101115, end: 20150915

REACTIONS (2)
  - Pain [None]
  - Product label issue [None]

NARRATIVE: CASE EVENT DATE: 20180208
